FAERS Safety Report 12870728 (Version 1)
Quarter: 2016Q4

REPORT INFORMATION
  Report Type: Spontaneous
  Country: US (occurrence: US)
  Receive Date: 20161020
  Receipt Date: 20161020
  Transmission Date: 20170207
  Serious: Yes (Other)
  Sender: FDA-Public Use
  Company Number: None

PATIENT
  Age: 27 Year
  Sex: Female

DRUGS (1)
  1. NEXPLANON [Suspect]
     Active Substance: ETONOGESTREL
     Indication: CONTRACEPTION
     Dosage: OTHER FREQUENCY:1; 68 MG; SUBCUTANEOUS ?
     Route: 058
     Dates: start: 20160605

REACTIONS (1)
  - Suppressed lactation [None]

NARRATIVE: CASE EVENT DATE: 20160629
